FAERS Safety Report 23606619 (Version 1)
Quarter: 2024Q1

REPORT INFORMATION
  Report Type: Spontaneous
  Country: US (occurrence: US)
  Receive Date: 20240307
  Receipt Date: 20240307
  Transmission Date: 20240409
  Serious: No
  Sender: FDA-Public Use
  Company Number: US-PFIZER INC-202400057515

PATIENT
  Sex: Female

DRUGS (1)
  1. LITFULO [Suspect]
     Active Substance: RITLECITINIB TOSYLATE
     Indication: Alopecia areata
     Dosage: UNK
     Dates: start: 20240208, end: 20240228

REACTIONS (2)
  - Rash [Recovering/Resolving]
  - Lip swelling [Recovering/Resolving]

NARRATIVE: CASE EVENT DATE: 20240228
